FAERS Safety Report 9698488 (Version 1)
Quarter: 2013Q4

REPORT INFORMATION
  Report Type: Spontaneous
  Country: US (occurrence: None)
  Receive Date: 20131030
  Receipt Date: 20131030
  Transmission Date: 20140711
  Serious: Yes (Other)
  Sender: FDA-Public Use
  Company Number: 2013038579

PATIENT
  Sex: Male

DRUGS (1)
  1. HIZENTRA [Suspect]
     Indication: IMMUNODEFICIENCY COMMON VARIABLE
     Dosage: 4 G 1X/WEEK,??-???-2011), (4 G 1X/WEEK. ??-???-2013), (4 G 1X/WEEK, VIA LEGS)
     Dates: start: 20131018, end: 20131018

REACTIONS (4)
  - Local swelling [None]
  - Infusion site discolouration [None]
  - Fatigue [None]
  - Hypersensitivity [None]
